FAERS Safety Report 14492030 (Version 4)
Quarter: 2018Q2

REPORT INFORMATION
  Report Type: Report from Study
  Country: FI (occurrence: FI)
  Receive Date: 20180206
  Receipt Date: 20180608
  Transmission Date: 20180711
  Serious: Yes (Hospitalization)
  Sender: FDA-Public Use
  Company Number: FI-EISAI MEDICAL RESEARCH-EC-2018-035744

PATIENT
  Age: 52 Year
  Sex: Female
  Weight: 96 kg

DRUGS (15)
  1. HYPOLOC [Concomitant]
  2. LENVATINIB [Suspect]
     Active Substance: LENVATINIB
     Indication: METASTATIC RENAL CELL CARCINOMA
     Route: 048
     Dates: start: 20171205, end: 20180131
  3. EVEROLIMUS. [Suspect]
     Active Substance: EVEROLIMUS
     Route: 048
     Dates: start: 20180116, end: 20180131
  4. BEZALIP [Concomitant]
     Active Substance: BEZAFIBRATE
  5. CANDESARTAN/HYDROCH [Concomitant]
  6. EVEROLIMUS. [Suspect]
     Active Substance: EVEROLIMUS
     Route: 048
     Dates: start: 20180215, end: 201805
  7. OXYCONTIN [Concomitant]
     Active Substance: OXYCODONE HYDROCHLORIDE
  8. THYROXIN [Concomitant]
     Active Substance: LEVOTHYROXINE
  9. LANTUS [Concomitant]
     Active Substance: INSULIN GLARGINE
  10. LENVATINIB [Suspect]
     Active Substance: LENVATINIB
     Route: 048
     Dates: start: 20180329, end: 201805
  11. LENVATINIB [Suspect]
     Active Substance: LENVATINIB
     Route: 048
     Dates: start: 20180215, end: 20180328
  12. ATORVASTATIN [Concomitant]
     Active Substance: ATORVASTATIN
  13. KALCIPOS-D [Concomitant]
     Active Substance: CALCIUM CARBONATE\CHOLECALCIFEROL
  14. EVEROLIMUS. [Suspect]
     Active Substance: EVEROLIMUS
     Indication: METASTATIC RENAL CELL CARCINOMA
     Route: 048
     Dates: start: 20171205, end: 20180115
  15. DYMISTA [Concomitant]
     Active Substance: AZELASTINE HYDROCHLORIDE\FLUTICASONE PROPIONATE

REACTIONS (3)
  - Diarrhoea [Recovered/Resolved]
  - Pneumothorax spontaneous [Recovered/Resolved]
  - Drug titration error [Recovered/Resolved]

NARRATIVE: CASE EVENT DATE: 20180131
